FAERS Safety Report 20383801 (Version 1)
Quarter: 2022Q1

REPORT INFORMATION
  Report Type: Spontaneous
  Country: US (occurrence: US)
  Receive Date: 20220127
  Receipt Date: 20220127
  Transmission Date: 20220423
  Serious: No
  Sender: FDA-Public Use
  Company Number: US-ALLERGAN-2102329US

PATIENT
  Age: 41 Year
  Sex: Female

DRUGS (9)
  1. BOTOX COSMETIC [Suspect]
     Active Substance: ONABOTULINUMTOXINA
     Indication: Skin wrinkling
     Dosage: 2.5 UNITS, SINGLE
     Dates: start: 20201229, end: 20201229
  2. BOTOX COSMETIC [Suspect]
     Active Substance: ONABOTULINUMTOXINA
     Indication: Skin wrinkling
     Dosage: 2.5 UNITS, SINGLE
     Dates: start: 20201229, end: 20201229
  3. BOTOX COSMETIC [Suspect]
     Active Substance: ONABOTULINUMTOXINA
     Indication: Skin wrinkling
     Dosage: 5 UNITS, SINGLE
     Dates: start: 20201221, end: 20201221
  4. BOTOX COSMETIC [Suspect]
     Active Substance: ONABOTULINUMTOXINA
     Dosage: 5 UNITS, SINGLE
     Dates: start: 20201221, end: 20201221
  5. BOTOX COSMETIC [Suspect]
     Active Substance: ONABOTULINUMTOXINA
     Dosage: 1.5 UNITS, SINGLE
     Dates: start: 20201221, end: 20201221
  6. BOTOX COSMETIC [Suspect]
     Active Substance: ONABOTULINUMTOXINA
     Dosage: 1.5 UNITS, SINGLE
     Dates: start: 20201221, end: 20201221
  7. BOTOX COSMETIC [Suspect]
     Active Substance: ONABOTULINUMTOXINA
     Dosage: 10 UNITS, SINGLE
     Dates: start: 20201221, end: 20201221
  8. BOTOX COSMETIC [Suspect]
     Active Substance: ONABOTULINUMTOXINA
     Dosage: 2.5 UNITS, SINGLE
     Dates: start: 20201221, end: 20201221
  9. BOTOX COSMETIC [Suspect]
     Active Substance: ONABOTULINUMTOXINA
     Dosage: 2.5 UNITS, SINGLE
     Dates: start: 20201221, end: 20201221

REACTIONS (4)
  - Injection site indentation [Recovered/Resolved]
  - Product preparation error [Unknown]
  - Injection site swelling [Recovered/Resolved]
  - Drug ineffective [Unknown]

NARRATIVE: CASE EVENT DATE: 20201201
